FAERS Safety Report 8470512-2 (Version None)
Quarter: 2012Q2

REPORT INFORMATION
  Report Type: 
  Country: None (occurrence: None)
  Receive Date: 20120627
  Receipt Date: 20111128
  Transmission Date: 20120825
  Serious: No
  Sender: FDA-Public Use
  Company Number: US-MYLANLABS-2011S1022359

PATIENT
  Age: 72 Year
  Sex: Male
  Weight: 124.74 kg

DRUGS (6)
  1. BUDESONIDE [Concomitant]
     Route: 055
  2. IPRATROPIUM BROMIDE [Concomitant]
     Route: 055
  3. PERFOROMIST [Suspect]
     Indication: ASTHMA
     Route: 055
     Dates: start: 20111010, end: 20111031
  4. ALBUTEROL [Concomitant]
     Route: 055
  5. PERFOROMIST [Suspect]
     Indication: CHRONIC OBSTRUCTIVE PULMONARY DISEASE
     Route: 055
     Dates: start: 20111010, end: 20111031
  6. PERFOROMIST [Suspect]
     Indication: BRONCHITIS CHRONIC
     Route: 055
     Dates: start: 20111010, end: 20111031

REACTIONS (1)
  - DYSPNOEA [None]
